FAERS Safety Report 8809493 (Version 2)
Quarter: 2012Q4

REPORT INFORMATION
  Report Type: 
  Country: US (occurrence: US)
  Receive Date: 20120926
  Receipt Date: 20121002
  Transmission Date: 20130627
  Serious: Yes (Death, Hospitalization)
  Sender: FDA-Public Use
  Company Number: US-GILEAD-2012-0061726

PATIENT
  Sex: Female

DRUGS (2)
  1. LETAIRIS [Suspect]
     Indication: PULMONARY ARTERIAL HYPERTENSION
     Dosage: 5 mg, UNK
     Route: 048
     Dates: start: 20080620, end: 20120922
  2. FLOLAN [Concomitant]

REACTIONS (5)
  - Septic shock [Fatal]
  - Respiratory tract infection [Unknown]
  - Staphylococcal infection [Not Recovered/Not Resolved]
  - Malaise [Unknown]
  - Fluid retention [Not Recovered/Not Resolved]
